FAERS Safety Report 4662719-7 (Version None)
Quarter: 2005Q2

REPORT INFORMATION
  Report Type: 
  Country: None (occurrence: None)
  Receive Date: 20050516
  Receipt Date: 20050324
  Transmission Date: 20051028
  Serious: Yes (Other)
  Sender: FDA-Public Use
  Company Number: SER/8/3884

PATIENT
  Sex: Female

DRUGS (3)
  1. PAROXETINE HCL [Suspect]
     Route: 065
     Dates: start: 19970801
  2. PAROXETINE HYDROCHLORIDE [Suspect]
     Route: 065
  3. PROZAC [Concomitant]
     Route: 065

REACTIONS (11)
  - AGGRESSION [None]
  - AGITATION [None]
  - ANGER [None]
  - CRYING [None]
  - DRUG WITHDRAWAL SYNDROME [None]
  - HEADACHE [None]
  - HYPERHIDROSIS [None]
  - NAUSEA [None]
  - PANIC REACTION [None]
  - PERSONALITY CHANGE [None]
  - SUICIDAL IDEATION [None]
